FAERS Safety Report 7392737-X (Version None)
Quarter: 2011Q2

REPORT INFORMATION
  Report Type: 
  Country: None (occurrence: None)
  Receive Date: 20110404
  Receipt Date: 20110324
  Transmission Date: 20111010
  Serious: Yes (Hospitalization)
  Sender: FDA-Public Use
  Company Number: LU-ASTRAZENECA-2011SE16686

PATIENT

DRUGS (2)
  1. SEROQUEL [Suspect]
     Route: 048
  2. LYSANXIA [Concomitant]

REACTIONS (1)
  - HEPATITIS TOXIC [None]
